FAERS Safety Report 4550141-3 (Version None)
Quarter: 2005Q1

REPORT INFORMATION
  Report Type: 
  Country: None (occurrence: None)
  Receive Date: 20050107
  Receipt Date: 20041228
  Transmission Date: 20050727
  Serious: Yes (Hospitalization, Other)
  Sender: FDA-Public Use
  Company Number: 2004120692

PATIENT
  Age: 18 Year
  Sex: Male
  Weight: 68.0396 kg

DRUGS (4)
  1. GEODON [Suspect]
     Indication: HALLUCINATION, AUDITORY
     Dosage: 40 MG (40 MG, 1 IN 1 D), ORAL
     Route: 048
     Dates: start: 20040201, end: 20041201
  2. OXYCARBAZEPINE (OXCARBAZEPINE ) [Concomitant]
  3. ESCITALOPRAM (ESCITALOPRAM) [Concomitant]
  4. BENZTROPINE MESYLATE [Concomitant]

REACTIONS (3)
  - BLOOD ALKALINE PHOSPHATASE INCREASED [None]
  - HEPATITIS B SURFACE ANTIGEN POSITIVE [None]
  - HOMICIDAL IDEATION [None]
